FAERS Safety Report 8262627-9 (Version None)
Quarter: 2012Q2

REPORT INFORMATION
  Report Type: 
  Country: None (occurrence: None)
  Receive Date: 20120405
  Receipt Date: 20120326
  Transmission Date: 20120825
  Serious: Yes (Other)
  Sender: FDA-Public Use
  Company Number: US-JNJFOC-20120313390

PATIENT
  Sex: Male
  Weight: 102.06 kg

DRUGS (4)
  1. BENICAR [Concomitant]
     Indication: BLOOD PRESSURE
     Route: 048
     Dates: start: 20110101
  2. REMICADE [Suspect]
     Indication: ANKYLOSING SPONDYLITIS
     Route: 042
     Dates: start: 20110901
  3. FENTANYL [Concomitant]
     Indication: PAIN
     Route: 062
     Dates: start: 20070101
  4. ACTOPLUS MET [Concomitant]
     Indication: DIABETES MELLITUS
     Dosage: DOSE: 850 (UNITS UNSPECIFIED)
     Route: 048
     Dates: start: 20060101

REACTIONS (4)
  - HYPERHIDROSIS [None]
  - DRUG INEFFECTIVE [None]
  - REFLUX LARYNGITIS [None]
  - PAIN [None]
